FAERS Safety Report 5663190-9 (Version None)
Quarter: 2008Q1

REPORT INFORMATION
  Report Type: 
  Country: None (occurrence: None)
  Receive Date: 20080313
  Receipt Date: 20080128
  Transmission Date: 20080703
  Serious: Yes (Death)
  Sender: FDA-Public Use
  Company Number: US-TYCO HEALTHCARE/MALLINCKRODT-T200800325

PATIENT

DRUGS (5)
  1. OXYCODONE HCL [Suspect]
     Route: 065
  2. CARDIAC GLYCOSIDES [Suspect]
     Route: 065
  3. FUROSEMIDE [Suspect]
     Route: 065
  4. AMITRIPTYLINE HCL [Suspect]
     Route: 065
  5. BENZODIAZEPINE DERIVATIVES [Suspect]
     Route: 065

REACTIONS (1)
  - DEATH [None]
